FAERS Safety Report 6516995-6 (Version None)
Quarter: 2009Q4

REPORT INFORMATION
  Report Type: 
  Country: None (occurrence: None)
  Receive Date: 20091223
  Receipt Date: 20091216
  Transmission Date: 20100525
  Serious: Yes (Other)
  Sender: FDA-Public Use
  Company Number: US-JNJCH-2009032671

PATIENT
  Age: 41 Year
  Sex: Female
  Weight: 88.5 kg

DRUGS (5)
  1. KIRKLAND SIGNATURE 5% [Suspect]
     Indication: ALOPECIA
     Route: 061
     Dates: start: 20091201, end: 20091216
  2. CYTOMEL [Concomitant]
     Indication: THYROID DISORDER
     Dosage: TEXT:ONE 25MCG 1X A DAY
     Route: 065
  3. CARBAMAZEPINE [Concomitant]
     Indication: DEPRESSION
     Dosage: TEXT:ONE 200MG 3X A DAY
     Route: 065
  4. BUSPIRONE HCL [Concomitant]
     Indication: DEPRESSION
     Dosage: TEXT:ONE 15MG 2X A DAY
     Route: 065
  5. PROZAC [Concomitant]
     Indication: DEPRESSION
     Dosage: TEXT:ONE 80MG 1X A DAY
     Route: 065

REACTIONS (4)
  - FACIAL PALSY [None]
  - HYPOAESTHESIA FACIAL [None]
  - PARAESTHESIA ORAL [None]
  - WRONG DRUG ADMINISTERED [None]
